FAERS Safety Report 4930711-0 (Version None)
Quarter: 2006Q1

REPORT INFORMATION
  Report Type: 
  Country: None (occurrence: None)
  Receive Date: 20060227
  Receipt Date: 20060215
  Transmission Date: 20060701
  Serious: Yes (Other)
  Sender: FDA-Public Use
  Company Number: 2006022570

PATIENT
  Sex: Female
  Weight: 53.978 kg

DRUGS (1)
  1. LIPITOR [Suspect]
     Indication: BLOOD CHOLESTEROL INCREASED
     Dosage: 10 MG (10 MG, 1 IN 1 D)

REACTIONS (8)
  - ABDOMINAL PAIN UPPER [None]
  - FLATULENCE [None]
  - LOW DENSITY LIPOPROTEIN INCREASED [None]
  - MYALGIA [None]
  - OSTEOARTHRITIS [None]
  - OSTEOPENIA [None]
  - POLYP [None]
  - RAYNAUD'S PHENOMENON [None]
